FAERS Safety Report 25217068 (Version 3)
Quarter: 2025Q2

REPORT INFORMATION
  Report Type: Spontaneous
  Country: CA (occurrence: CA)
  Receive Date: 20250419
  Receipt Date: 20250621
  Transmission Date: 20250717
  Serious: Yes (Hospitalization)
  Sender: CELLTRION
  Company Number: CA-PFIZER INC-202500019064

PATIENT

DRUGS (3)
  1. INFLECTRA [Suspect]
     Active Substance: INFLIXIMAB-DYYB
     Indication: Crohn^s disease
     Route: 042
     Dates: start: 20220506
  2. INFLECTRA [Suspect]
     Active Substance: INFLIXIMAB-DYYB
     Route: 042
     Dates: start: 20241209
  3. INFLECTRA [Suspect]
     Active Substance: INFLIXIMAB-DYYB
     Route: 042
     Dates: start: 20250220

REACTIONS (8)
  - Skin ulcer [Recovered/Resolved]
  - Wound infection [Unknown]
  - Asthenia [Unknown]
  - Listless [Unknown]
  - Malaise [Unknown]
  - Rhinorrhoea [Unknown]
  - Gastroenteritis [Unknown]
  - Nausea [Unknown]

NARRATIVE: CASE EVENT DATE: 20250101
